FAERS Safety Report 9829510 (Version 3)
Quarter: 2014Q1

REPORT INFORMATION
  Report Type: Spontaneous
  Country: US (occurrence: US)
  Receive Date: 20140120
  Receipt Date: 20140303
  Transmission Date: 20141002
  Serious: No
  Sender: FDA-Public Use
  Company Number: US-BIOGENIDEC-2014BI004099

PATIENT
  Age: 42 Year
  Sex: Male

DRUGS (2)
  1. AVONEX [Suspect]
     Indication: MULTIPLE SCLEROSIS
     Route: 030
  2. AVONEX [Suspect]
     Indication: MULTIPLE SCLEROSIS
     Route: 030
     Dates: start: 20131005

REACTIONS (12)
  - Blood pressure decreased [Recovered/Resolved with Sequelae]
  - Weight decreased [Recovered/Resolved]
  - Starvation [Not Recovered/Not Resolved]
  - Feeling cold [Not Recovered/Not Resolved]
  - Disturbance in attention [Not Recovered/Not Resolved]
  - Influenza [Not Recovered/Not Resolved]
  - Fear of injection [Not Recovered/Not Resolved]
  - Injection site haemorrhage [Recovered/Resolved with Sequelae]
  - Contusion [Recovered/Resolved with Sequelae]
  - Asthenia [Recovered/Resolved with Sequelae]
  - Feeling abnormal [Recovered/Resolved with Sequelae]
  - Injection site pain [Not Recovered/Not Resolved]
